FAERS Safety Report 4385789-2 (Version None)
Quarter: 2004Q2

REPORT INFORMATION
  Report Type: 
  Country: None (occurrence: None)
  Receive Date: 20040628
  Receipt Date: 20040616
  Transmission Date: 20050107
  Serious: Yes (Life-Threatening)
  Sender: FDA-Public Use
  Company Number: GB-AMGEN-US081304

PATIENT
  Sex: Female

DRUGS (13)
  1. KINERET [Suspect]
     Route: 058
     Dates: start: 20010501, end: 20020501
  2. ENBREL [Suspect]
     Route: 042
     Dates: start: 20030701
  3. REMICADE [Suspect]
     Dates: start: 20010501, end: 20021101
  4. FUROSEMIDE [Concomitant]
     Dates: start: 19991201
  5. ENALAPRIL MALEATE [Concomitant]
     Dates: start: 19970101
  6. AMITRIPTYLINE HCL [Concomitant]
     Dates: start: 19971101
  7. PAROXETINE HCL [Concomitant]
  8. TEMAZEPAM [Concomitant]
  9. METFORMIN HCL [Concomitant]
  10. DIHYDROCODEINE [Concomitant]
  11. FOLIC ACID [Concomitant]
  12. OMEPRAZOLE [Concomitant]
  13. METHOTREXATE [Concomitant]
     Dates: start: 20001201

REACTIONS (1)
  - BASAL CELL CARCINOMA [None]
